FAERS Safety Report 5854727-5 (Version None)
Quarter: 2008Q3

REPORT INFORMATION
  Report Type: 
  Country: None (occurrence: None)
  Receive Date: 20080822
  Receipt Date: 20071129
  Transmission Date: 20090109
  Serious: No
  Sender: FDA-Public Use
  Company Number: US-ABBOTT-07P-163-0427056-00

PATIENT
  Sex: Female
  Weight: 159 kg

DRUGS (2)
  1. SYNTHROID [Suspect]
     Indication: HYPOTHYROIDISM
     Route: 048
     Dates: start: 20030101, end: 20070801
  2. SYNTHROID [Suspect]
     Dosage: 150MCQ
     Route: 048
     Dates: start: 20070801

REACTIONS (7)
  - ABDOMINAL PAIN UPPER [None]
  - ALOPECIA [None]
  - ASTHENIA [None]
  - DRUG INEFFECTIVE [None]
  - FOOD INTOLERANCE [None]
  - GASTRIC ULCER [None]
  - WEIGHT INCREASED [None]
